FAERS Safety Report 21130035 (Version 2)
Quarter: 2022Q3

REPORT INFORMATION
  Report Type: Spontaneous
  Country: RS (occurrence: RS)
  Receive Date: 20220726
  Receipt Date: 20220802
  Transmission Date: 20221027
  Serious: Yes (Hospitalization)
  Sender: FDA-Public Use
  Company Number: RS-ALKEM LABORATORIES LIMITED-RS-ALKEM-2022-07545

PATIENT
  Age: 26 Year
  Sex: Female

DRUGS (2)
  1. OLANZAPINE [Suspect]
     Active Substance: OLANZAPINE
     Indication: Product used for unknown indication
     Dosage: 1680 MILLIGRAM
     Route: 065
  2. OLANZAPINE [Suspect]
     Active Substance: OLANZAPINE
     Dosage: UNK, OD (ONCE A DAY)
     Route: 065

REACTIONS (2)
  - Overdose [Unknown]
  - Toxicity to various agents [Unknown]
